FAERS Safety Report 12498296 (Version 2)
Quarter: 2016Q3

REPORT INFORMATION
  Report Type: Spontaneous
  Country: US (occurrence: US)
  Receive Date: 20160627
  Receipt Date: 20160712
  Transmission Date: 20161109
  Serious: No
  Sender: FDA-Public Use
  Company Number: US-009507513-1606USA011271

PATIENT
  Sex: Female
  Weight: 121.54 kg

DRUGS (1)
  1. NEXPLANON [Suspect]
     Active Substance: ETONOGESTREL
     Dosage: 68 MG, ONE ROD PER 3 YEARS
     Route: 059
     Dates: start: 20160114

REACTIONS (2)
  - No adverse event [Unknown]
  - Device breakage [Not Recovered/Not Resolved]

NARRATIVE: CASE EVENT DATE: 2016
